FAERS Safety Report 23599211 (Version 2)
Quarter: 2024Q2

REPORT INFORMATION
  Report Type: Spontaneous
  Country: CZ (occurrence: CZ)
  Receive Date: 20240306
  Receipt Date: 20240402
  Transmission Date: 20240716
  Serious: Yes (Other)
  Sender: FDA-Public Use
  Company Number: CZ-CELLTRION INC.-2024CZ005030

PATIENT

DRUGS (16)
  1. RITUXIMAB [Suspect]
     Active Substance: RITUXIMAB
     Indication: Immunochemotherapy
     Dosage: UNK
     Route: 065
  2. RITUXIMAB [Suspect]
     Active Substance: RITUXIMAB
     Indication: Follicular lymphoma
     Dosage: SIX CYCLES OF R-CHOP STANDARD COMBINATION CHEMOIMMUNOTHERAPY
  3. RITUXIMAB [Suspect]
     Active Substance: RITUXIMAB
     Dosage: RITUXIMAB MAINTENANCE THERAPY
     Dates: end: 201308
  4. RITUXIMAB [Suspect]
     Active Substance: RITUXIMAB
     Dosage: 90 MG/M2, SIX CYCLES OF COMBINED RITUMIXAB-BENDAMUSTINE AS SECOND-LINE TREATMENT
     Dates: start: 201602
  5. RITUXIMAB [Suspect]
     Active Substance: RITUXIMAB
     Dosage: TREATED WITH COMBINATION LENALIDOMIDE-RITUXIMAB IN THE FOURTH LINE OF TREATMENT
  6. RITUXIMAB [Suspect]
     Active Substance: RITUXIMAB
     Dosage: FOUR CYCLES OF R-DHAOX AT REDUCED DOSES
     Route: 065
     Dates: start: 202205
  7. CYTARABINE [Suspect]
     Active Substance: CYTARABINE
     Indication: Immunochemotherapy
     Dosage: FOUR CYCLES OF R-DHAOX AT REDUCED DOSES DUE TO AGE
     Route: 065
     Dates: start: 202205
  8. CYTARABINE [Suspect]
     Active Substance: CYTARABINE
     Indication: Follicular lymphoma
  9. OXALIPLATIN [Suspect]
     Active Substance: OXALIPLATIN
     Indication: Immunochemotherapy
     Dosage: FOUR CYCLES OF R-DHAOX AT REDUCED DOSES DUE TO AGE
     Route: 065
     Dates: start: 202205
  10. OXALIPLATIN [Suspect]
     Active Substance: OXALIPLATIN
     Indication: Follicular lymphoma
  11. DEXAMETHASONE [Suspect]
     Active Substance: DEXAMETHASONE
     Indication: Immunochemotherapy
     Dosage: FOUR CYCLES OF R-DHAOX AT REDUCED DOSES DUE TO AGE
     Route: 065
     Dates: start: 202205
  12. DEXAMETHASONE [Suspect]
     Active Substance: DEXAMETHASONE
     Indication: Follicular lymphoma
  13. CYCLOPHOSPHAMIDE\DOXORUBICIN\PREDNISONE\VINCRISTINE [Suspect]
     Active Substance: CYCLOPHOSPHAMIDE\DOXORUBICIN\PREDNISONE\VINCRISTINE
     Indication: Follicular lymphoma
     Dosage: SIX CYCLES OF R-CHOP
  14. BENDAMUSTINE [Suspect]
     Active Substance: BENDAMUSTINE
     Indication: Follicular lymphoma
     Dosage: 90 MG/M2, SIX CYCLES OF COMBINED RITUMIXAB-BENDAMUSTINE AS SECOND-LINE TREATMENT
     Dates: start: 201602
  15. OBINUTUZUMAB [Suspect]
     Active Substance: OBINUTUZUMAB
     Indication: Follicular lymphoma
     Dosage: UNK, CYCLIC
     Dates: start: 201907
  16. LENALIDOMIDE [Suspect]
     Active Substance: LENALIDOMIDE
     Indication: Follicular lymphoma
     Dosage: TERMINATED AFTER THE FIRST CYCLE
     Dates: start: 202101

REACTIONS (2)
  - Neoplasm [Recovering/Resolving]
  - Therapeutic response decreased [Unknown]
